FAERS Safety Report 5739303-7 (Version None)
Quarter: 2008Q2

REPORT INFORMATION
  Report Type: 
  Country: None (occurrence: None)
  Receive Date: 20080515
  Receipt Date: 20080506
  Transmission Date: 20081010
  Serious: Yes (Other)
  Sender: FDA-Public Use
  Company Number: CA-JNJFOC-20080501595

PATIENT
  Age: 27 Year
  Sex: Female
  Weight: 55 kg

DRUGS (4)
  1. REMICADE [Suspect]
     Indication: CROHN'S DISEASE
     Route: 042
  2. ACETAMINOPHEN [Concomitant]
     Indication: PREMEDICATION
     Dosage: DOSE: 650
  3. BENADRYL [Concomitant]
     Indication: PREMEDICATION
     Dosage: DOSE: 50
  4. HYDROCORTIZONE [Concomitant]
     Indication: PREMEDICATION
     Dosage: DOSE:200

REACTIONS (3)
  - ANAL FISTULA [None]
  - GENITAL CYST [None]
  - VAGINAL FISTULA [None]
